FAERS Safety Report 5112539-4 (Version None)
Quarter: 2006Q3

REPORT INFORMATION
  Report Type: 
  Country: None (occurrence: None)
  Receive Date: 20060922
  Receipt Date: 20010122
  Transmission Date: 20061208
  Serious: Yes (Hospitalization, Other)
  Sender: FDA-Public Use
  Company Number: JP-NOVOPROD-207333

PATIENT
  Age: 11 Year
  Sex: Male

DRUGS (8)
  1. ALDACTONE [Concomitant]
     Route: 048
     Dates: start: 19920630, end: 19990415
  2. ALDACTONE [Concomitant]
     Route: 048
     Dates: start: 19990416
  3. ASPIRIN [Concomitant]
     Route: 048
     Dates: start: 19970128, end: 19990209
  4. WARFARIN SODIUM [Concomitant]
     Route: 048
     Dates: start: 19980526, end: 19990208
  5. WARFARIN SODIUM [Concomitant]
     Route: 048
     Dates: start: 19990209, end: 19990722
  6. WARFARIN SODIUM [Concomitant]
     Route: 048
     Dates: start: 19990723
  7. NORDITROPIN [Suspect]
     Indication: GROWTH HORMONE DEFICIENCY
     Dosage: 2 IU, QD
     Route: 058
     Dates: start: 19980106, end: 19991025
  8. NORDITROPIN SIMPLEXX [Suspect]
     Indication: GROWTH HORMONE DEFICIENCY
     Dosage: 5.8 MG, UNK
     Route: 058
     Dates: start: 20001024

REACTIONS (1)
  - NEPHROTIC SYNDROME [None]
